FAERS Safety Report 16463656 (Version 3)
Quarter: 2019Q3

REPORT INFORMATION
  Report Type: Spontaneous
  Country: US (occurrence: US)
  Receive Date: 20190621
  Receipt Date: 20190925
  Transmission Date: 20191004
  Serious: Yes (Hospitalization, Other)
  Sender: FDA-Public Use
  Company Number: US-ASTRAZENECA-2019SE11486

PATIENT
  Age: 75 Year
  Sex: Female
  Weight: 112.9 kg

DRUGS (35)
  1. PRILOSEC [Suspect]
     Active Substance: OMEPRAZOLE MAGNESIUM
     Indication: GASTROOESOPHAGEAL REFLUX DISEASE
     Dosage: GENERIC
     Route: 065
     Dates: start: 2009, end: 2017
  2. POTASSIUM CHLORIDE. [Concomitant]
     Active Substance: POTASSIUM CHLORIDE
  3. NOVOLIN N [Concomitant]
     Active Substance: INSULIN HUMAN
  4. KLOR-CON [Concomitant]
     Active Substance: POTASSIUM CHLORIDE
  5. COLCRYS [Concomitant]
     Active Substance: COLCHICINE
  6. HUMULIN N [Concomitant]
     Active Substance: INSULIN HUMAN
  7. OXYCODONE [Concomitant]
     Active Substance: OXYCODONE
  8. VOLTAREN [Concomitant]
     Active Substance: DICLOFENAC SODIUM
  9. PEPCID AC [Concomitant]
     Active Substance: FAMOTIDINE
  10. OXYCONTIN [Concomitant]
     Active Substance: OXYCODONE HYDROCHLORIDE
  11. HUMULIN R [Concomitant]
     Active Substance: INSULIN HUMAN
  12. DORZOLAMIDE HCL [Concomitant]
     Active Substance: DORZOLAMIDE HYDROCHLORIDE
  13. LIDODERM [Concomitant]
     Active Substance: LIDOCAINE
  14. FAMOTIDINE. [Concomitant]
     Active Substance: FAMOTIDINE
  15. CARVEDILOL. [Concomitant]
     Active Substance: CARVEDILOL
  16. PRILOSEC [Suspect]
     Active Substance: OMEPRAZOLE MAGNESIUM
     Indication: GASTROOESOPHAGEAL REFLUX DISEASE
     Route: 048
  17. PREVACID [Suspect]
     Active Substance: LANSOPRAZOLE
     Indication: GASTROOESOPHAGEAL REFLUX DISEASE
     Route: 065
     Dates: start: 2018
  18. BENAZEPRIL [Concomitant]
     Active Substance: BENAZEPRIL HYDROCHLORIDE
  19. BUMETANIDE. [Concomitant]
     Active Substance: BUMETANIDE
  20. ALLOPURINOL. [Concomitant]
     Active Substance: ALLOPURINOL
  21. METOLAZONE. [Concomitant]
     Active Substance: METOLAZONE
  22. APAP [Concomitant]
     Active Substance: ACETAMINOPHEN
  23. PREDNISONE. [Concomitant]
     Active Substance: PREDNISONE
  24. DOCUSATE SODIUM. [Concomitant]
     Active Substance: DOCUSATE SODIUM
  25. ATENOLOL. [Concomitant]
     Active Substance: ATENOLOL
  26. FUROSEMIDE. [Concomitant]
     Active Substance: FUROSEMIDE
  27. CYCLOBENZAPRINE. [Concomitant]
     Active Substance: CYCLOBENZAPRINE
  28. CALCITROL [Concomitant]
  29. TAGAMET HB [Concomitant]
     Active Substance: CIMETIDINE
  30. NEXIUM [Suspect]
     Active Substance: ESOMEPRAZOLE MAGNESIUM
     Route: 048
  31. COLCHICINE. [Concomitant]
     Active Substance: COLCHICINE
  32. DOXAZOSIN MESYLATE. [Concomitant]
     Active Substance: DOXAZOSIN MESYLATE
  33. AZOPT [Concomitant]
     Active Substance: BRINZOLAMIDE
  34. HYDROXYZINE PAMOATE. [Concomitant]
     Active Substance: HYDROXYZINE PAMOATE
  35. PEPCID [Concomitant]
     Active Substance: FAMOTIDINE

REACTIONS (4)
  - Chronic kidney disease [Not Recovered/Not Resolved]
  - Renal injury [Unknown]
  - Renal failure [Not Recovered/Not Resolved]
  - Rebound acid hypersecretion [Unknown]

NARRATIVE: CASE EVENT DATE: 2018
